FAERS Safety Report 21695266 (Version 1)
Quarter: 2022Q4

REPORT INFORMATION
  Report Type: Spontaneous
  Country: US (occurrence: US)
  Receive Date: 20221207
  Receipt Date: 20221207
  Transmission Date: 20230113
  Serious: Yes (Other)
  Sender: FDA-Public Use
  Company Number: US-MYLANLABS-2022M1132955

PATIENT
  Age: 18 Year
  Sex: Male

DRUGS (1)
  1. ACYCLOVIR [Suspect]
     Active Substance: ACYCLOVIR
     Indication: Product used for unknown indication
     Dosage: UNK
     Route: 065

REACTIONS (8)
  - Encephalitis [Unknown]
  - Acute kidney injury [Unknown]
  - COVID-19 [Unknown]
  - Herpes simplex [Unknown]
  - Coinfection [Unknown]
  - Rash maculo-papular [Unknown]
  - Somnolence [Unknown]
  - Hypotension [Unknown]
